FAERS Safety Report 5215048-7 (Version None)
Quarter: 2007Q1

REPORT INFORMATION
  Report Type: 
  Country: None (occurrence: None)
  Receive Date: 20070122
  Receipt Date: 20070111
  Transmission Date: 20070707
  Serious: Yes (Hospitalization, Disabling)
  Sender: FDA-Public Use
  Company Number: JP-MERCK-0612USA03983

PATIENT
  Age: 65 Year
  Sex: Male

DRUGS (8)
  1. PEPCID RPD [Suspect]
     Indication: REFLUX OESOPHAGITIS
     Route: 048
     Dates: start: 20061101, end: 20061205
  2. PANALDINE [Suspect]
     Indication: STENT PLACEMENT
     Route: 048
     Dates: start: 20061101, end: 20061201
  3. ASPIRIN [Concomitant]
     Indication: STENT PLACEMENT
     Route: 048
     Dates: start: 20061101
  4. MEVALOTIN [Concomitant]
     Indication: HYPERLIPIDAEMIA
     Route: 048
     Dates: start: 20061101
  5. SIGMART [Concomitant]
     Indication: ANGINA PECTORIS
     Route: 048
     Dates: start: 20061101
  6. NOVORAPID [Concomitant]
     Indication: DIABETES MELLITUS
     Route: 058
     Dates: start: 20061101, end: 20061108
  7. NOVOLIN R [Concomitant]
     Indication: DIABETES MELLITUS
     Route: 058
     Dates: start: 20061101, end: 20061108
  8. HUMALOG MIX 25 [Concomitant]
     Indication: DIABETES MELLITUS
     Route: 058
     Dates: start: 20061109

REACTIONS (2)
  - GRANULOCYTOPENIA [None]
  - PHARYNGITIS [None]
